FAERS Safety Report 19768303 (Version 3)
Quarter: 2025Q3

REPORT INFORMATION
  Report Type: Spontaneous
  Country: EU (occurrence: EU)
  Receive Date: 20210831
  Receipt Date: 20250903
  Transmission Date: 20251021
  Serious: Yes (Other)
  Sender: MYLAN
  Company Number: EU-ARISTO PHARMA-FENT-GABA-LORA-MORP-PREG202103131

PATIENT
  Age: 38 Year
  Sex: Male

DRUGS (44)
  1. PREGABALIN [Interacting]
     Active Substance: PREGABALIN
     Indication: Product used for unknown indication
  2. PREGABALIN [Interacting]
     Active Substance: PREGABALIN
     Route: 065
  3. PREGABALIN [Interacting]
     Active Substance: PREGABALIN
     Route: 065
  4. PREGABALIN [Interacting]
     Active Substance: PREGABALIN
  5. TEMAZEPAM [Interacting]
     Active Substance: TEMAZEPAM
     Indication: Product used for unknown indication
  6. TEMAZEPAM [Interacting]
     Active Substance: TEMAZEPAM
     Route: 065
  7. TEMAZEPAM [Interacting]
     Active Substance: TEMAZEPAM
     Route: 065
  8. TEMAZEPAM [Interacting]
     Active Substance: TEMAZEPAM
  9. GABAPENTIN [Interacting]
     Active Substance: GABAPENTIN
     Indication: Product used for unknown indication
  10. GABAPENTIN [Interacting]
     Active Substance: GABAPENTIN
     Route: 065
  11. GABAPENTIN [Interacting]
     Active Substance: GABAPENTIN
     Route: 065
  12. GABAPENTIN [Interacting]
     Active Substance: GABAPENTIN
  13. FENTANYL [Interacting]
     Active Substance: FENTANYL
     Indication: Product used for unknown indication
  14. FENTANYL [Interacting]
     Active Substance: FENTANYL
     Route: 065
  15. FENTANYL [Interacting]
     Active Substance: FENTANYL
     Route: 065
  16. FENTANYL [Interacting]
     Active Substance: FENTANYL
  17. BUPROPION [Interacting]
     Active Substance: BUPROPION
     Indication: Product used for unknown indication
  18. BUPROPION [Interacting]
     Active Substance: BUPROPION
     Route: 065
  19. BUPROPION [Interacting]
     Active Substance: BUPROPION
     Route: 065
  20. BUPROPION [Interacting]
     Active Substance: BUPROPION
  21. DIAZEPAM [Interacting]
     Active Substance: DIAZEPAM
     Indication: Product used for unknown indication
  22. DIAZEPAM [Interacting]
     Active Substance: DIAZEPAM
     Route: 065
  23. DIAZEPAM [Interacting]
     Active Substance: DIAZEPAM
     Route: 065
  24. DIAZEPAM [Interacting]
     Active Substance: DIAZEPAM
  25. OXAZEPAM [Interacting]
     Active Substance: OXAZEPAM
     Indication: Product used for unknown indication
  26. OXAZEPAM [Interacting]
     Active Substance: OXAZEPAM
     Route: 065
  27. OXAZEPAM [Interacting]
     Active Substance: OXAZEPAM
     Route: 065
  28. OXAZEPAM [Interacting]
     Active Substance: OXAZEPAM
  29. LORAZEPAM [Interacting]
     Active Substance: LORAZEPAM
     Indication: Product used for unknown indication
  30. LORAZEPAM [Interacting]
     Active Substance: LORAZEPAM
     Route: 065
  31. LORAZEPAM [Interacting]
     Active Substance: LORAZEPAM
     Route: 065
  32. LORAZEPAM [Interacting]
     Active Substance: LORAZEPAM
  33. ALPRAZOLAM [Interacting]
     Active Substance: ALPRAZOLAM
     Indication: Product used for unknown indication
  34. ALPRAZOLAM [Interacting]
     Active Substance: ALPRAZOLAM
     Route: 065
  35. ALPRAZOLAM [Interacting]
     Active Substance: ALPRAZOLAM
     Route: 065
  36. ALPRAZOLAM [Interacting]
     Active Substance: ALPRAZOLAM
  37. NORDAZEPAM [Interacting]
     Active Substance: NORDAZEPAM
     Indication: Product used for unknown indication
  38. NORDAZEPAM [Interacting]
     Active Substance: NORDAZEPAM
     Route: 065
  39. NORDAZEPAM [Interacting]
     Active Substance: NORDAZEPAM
     Route: 065
  40. NORDAZEPAM [Interacting]
     Active Substance: NORDAZEPAM
  41. MORPHINE SULFATE [Interacting]
     Active Substance: MORPHINE SULFATE
     Indication: Product used for unknown indication
  42. MORPHINE SULFATE [Interacting]
     Active Substance: MORPHINE SULFATE
     Route: 065
  43. MORPHINE SULFATE [Interacting]
     Active Substance: MORPHINE SULFATE
     Route: 065
  44. MORPHINE SULFATE [Interacting]
     Active Substance: MORPHINE SULFATE

REACTIONS (9)
  - Abnormal behaviour [Unknown]
  - Bradyphrenia [Unknown]
  - Drug interaction [Unknown]
  - Drug abuse [Unknown]
  - Mood altered [Unknown]
  - Dysarthria [Unknown]
  - Aggression [Unknown]
  - Memory impairment [Unknown]
  - Drug dependence [Unknown]
